FAERS Safety Report 23154303 (Version 1)
Quarter: 2023Q4

REPORT INFORMATION
  Report Type: Spontaneous
  Country: US (occurrence: None)
  Receive Date: 20231107
  Receipt Date: 20231107
  Transmission Date: 20240110
  Serious: Yes (Other)
  Sender: FDA-Public Use
  Company Number: None

PATIENT
  Age: 61 Year
  Sex: Female
  Weight: 105.3 kg

DRUGS (3)
  1. DRY EYE FORMULA LUBRICANT EYE DROPS [Suspect]
     Active Substance: GLYCERIN\PROPYLENE GLYCOL
     Indication: Dry eye
     Dates: start: 20230712, end: 20230818
  2. PREDNISOLONE [Concomitant]
     Active Substance: PREDNISOLONE
  3. BRIMONIDINE [Concomitant]
     Active Substance: BRIMONIDINE TARTRATE

REACTIONS (1)
  - Eye infection [None]

NARRATIVE: CASE EVENT DATE: 20230918
